FAERS Safety Report 5227293-5 (Version None)
Quarter: 2007Q1

REPORT INFORMATION
  Report Type: 
  Country: None (occurrence: None)
  Receive Date: 20070202
  Receipt Date: 20070123
  Transmission Date: 20070707
  Serious: Yes (Other)
  Sender: FDA-Public Use
  Company Number: TW-ROCHE-479614

PATIENT
  Age: 62 Year
  Sex: Female
  Weight: 58 kg

DRUGS (2)
  1. PEGASYS [Suspect]
     Indication: HEPATITIS C
     Route: 058
     Dates: start: 20060815
  2. ROBATROL [Concomitant]
     Indication: HEPATITIS C
     Route: 048
     Dates: start: 20060815

REACTIONS (4)
  - ANAEMIA [None]
  - CHILLS [None]
  - HAEMATURIA [None]
  - RASH [None]
